FAERS Safety Report 8766297 (Version 1)
Quarter: 2012Q4

REPORT INFORMATION
  Report Type: 
  Country: NZ (occurrence: NZ)
  Receive Date: 20120904
  Receipt Date: 20120904
  Transmission Date: 20130627
  Serious: Yes (Death)
  Sender: FDA-Public Use
  Company Number: NZ-ROCHE-1114032

PATIENT
  Age: 35 Year
  Sex: Female

DRUGS (2)
  1. HERCEPTIN [Suspect]
     Indication: BREAST CANCER METASTATIC
     Route: 042
  2. LAPATINIB [Concomitant]
     Indication: BREAST CANCER METASTATIC

REACTIONS (1)
  - Malignant neoplasm progression [Fatal]
